FAERS Safety Report 19518642 (Version 1)
Quarter: 2021Q3

REPORT INFORMATION
  Report Type: Spontaneous
  Country: US (occurrence: US)
  Receive Date: 20210710
  Receipt Date: 20210710
  Transmission Date: 20211014
  Serious: Yes (Hospitalization)
  Sender: FDA-Public Use
  Company Number: None

PATIENT
  Sex: Male
  Weight: 114.3 kg

DRUGS (15)
  1. NEURONTIN [Concomitant]
     Active Substance: GABAPENTIN
  2. DILANTIN [Concomitant]
     Active Substance: PHENYTOIN
  3. KEPPRA XR [Concomitant]
     Active Substance: LEVETIRACETAM
  4. ASPIRIN. [Concomitant]
     Active Substance: ASPIRIN
  5. INLYTA [Suspect]
     Active Substance: AXITINIB
     Indication: RENAL CANCER
  6. INLYTA [Suspect]
     Active Substance: AXITINIB
     Indication: RENAL CANCER
  7. ALBUTEROL. [Concomitant]
     Active Substance: ALBUTEROL
  8. METFORMIN [Concomitant]
     Active Substance: METFORMIN HYDROCHLORIDE
  9. CARBAMAZEPINE. [Concomitant]
     Active Substance: CARBAMAZEPINE
  10. FLOMAX [Concomitant]
     Active Substance: TAMSULOSIN HYDROCHLORIDE
  11. SINGULAIR [Concomitant]
     Active Substance: MONTELUKAST SODIUM
  12. JARDIANCE [Concomitant]
     Active Substance: EMPAGLIFLOZIN
  13. ACTOS [Concomitant]
     Active Substance: PIOGLITAZONE HYDROCHLORIDE
  14. AMARYL [Concomitant]
     Active Substance: GLIMEPIRIDE
  15. FENOFIBRATE. [Concomitant]
     Active Substance: FENOFIBRATE

REACTIONS (1)
  - Hospitalisation [None]
